FAERS Safety Report 8563291 (Version 12)
Quarter: 2015Q2

REPORT INFORMATION
  Report Type: Spontaneous
  Country: BR (occurrence: BR)
  Receive Date: 20120515
  Receipt Date: 20150605
  Transmission Date: 20150821
  Serious: Yes (Other)
  Sender: FDA-Public Use
  Company Number: BR-AMGEN-BRASP2012014204

PATIENT
  Age: 69 Year
  Sex: Male
  Weight: 79 kg

DRUGS (9)
  1. SIMVASTATIN. [Concomitant]
     Active Substance: SIMVASTATIN
     Indication: BLOOD CHOLESTEROL INCREASED
     Dosage: (STRENGTH 20MG) AT 1 TABLET, UNK
  2. PRADAXA [Concomitant]
     Active Substance: DABIGATRAN ETEXILATE MESYLATE
     Indication: THROMBOSIS PROPHYLAXIS
     Dosage: UNK
     Dates: start: 20120501
  3. ENBREL [Suspect]
     Active Substance: ETANERCEPT
     Indication: PSORIATIC ARTHROPATHY
     Dosage: UNK
     Route: 065
  4. ENBREL [Suspect]
     Active Substance: ETANERCEPT
     Indication: PSORIASIS
     Dosage: 50 MG, WEEKLY (EVERY TUESDAY)
     Route: 058
     Dates: start: 20120224
  5. SIMVASTATIN. [Concomitant]
     Active Substance: SIMVASTATIN
     Indication: BLOOD CHOLESTEROL
  6. SIMVASTATIN. [Concomitant]
     Active Substance: SIMVASTATIN
     Indication: BLOOD CHOLESTEROL INCREASED
  7. ENBREL [Suspect]
     Active Substance: ETANERCEPT
     Dosage: 50 MG, ONCE WEEKLY
     Route: 065
     Dates: start: 201202
  8. PARACETAMOL [Concomitant]
     Active Substance: ACETAMINOPHEN
     Indication: PAIN
     Dosage: UNK
     Dates: start: 20120501
  9. SIMVASTATIN. [Concomitant]
     Active Substance: SIMVASTATIN
     Indication: BLOOD CHOLESTEROL
     Dosage: 10 MG, 1X/DAY

REACTIONS (17)
  - Dry eye [Recovering/Resolving]
  - Drug effect incomplete [Unknown]
  - Blood uric acid increased [Not Recovered/Not Resolved]
  - Gallbladder disorder [Unknown]
  - Chromaturia [Unknown]
  - Eye irritation [Recovering/Resolving]
  - Fibula fracture [Unknown]
  - Fall [Unknown]
  - Blood cholesterol increased [Unknown]
  - Visual impairment [Recovering/Resolving]
  - Wound [Recovered/Resolved]
  - Erythema [Unknown]
  - Skin injury [Not Recovered/Not Resolved]
  - Lacrimation increased [Recovering/Resolving]
  - Pruritus [Not Recovered/Not Resolved]
  - Tibia fracture [Unknown]
  - Meniscus injury [Unknown]

NARRATIVE: CASE EVENT DATE: 20120224
